FAERS Safety Report 10398754 (Version 1)
Quarter: 2014Q3

REPORT INFORMATION
  Report Type: Spontaneous
  Country: US (occurrence: US)
  Receive Date: 20140821
  Receipt Date: 20140821
  Transmission Date: 20150326
  Serious: No
  Sender: FDA-Public Use
  Company Number: US-PFIZER INC-2014230462

PATIENT
  Age: 52 Year
  Sex: Female

DRUGS (2)
  1. NICOTROL [Suspect]
     Active Substance: NICOTINE
     Indication: SMOKING CESSATION THERAPY
     Dosage: UNK
  2. NICOTROL [Suspect]
     Active Substance: NICOTINE
     Indication: SMOKING CESSATION THERAPY
     Dosage: UNK

REACTIONS (8)
  - Anxiety [Unknown]
  - Fall [Unknown]
  - Stress [Unknown]
  - Thermal burn [Unknown]
  - Gait disturbance [Unknown]
  - Anger [Unknown]
  - Drug effect incomplete [Unknown]
  - Injury [Unknown]
